FAERS Safety Report 19184111 (Version 1)
Quarter: 2021Q2

REPORT INFORMATION
  Report Type: Spontaneous
  Country: US (occurrence: US)
  Receive Date: 20210425
  Receipt Date: 20210425
  Transmission Date: 20210717
  Serious: Yes (Disabling)
  Sender: FDA-Public Use
  Company Number: None

PATIENT
  Age: 49 Year
  Sex: Female

DRUGS (2)
  1. MIRENA [Suspect]
     Active Substance: LEVONORGESTREL
     Dates: start: 20160315, end: 20210420
  2. BP MEDS [Concomitant]

REACTIONS (3)
  - Loss of personal independence in daily activities [None]
  - Impaired work ability [None]
  - Embedded device [None]

NARRATIVE: CASE EVENT DATE: 20210420
